FAERS Safety Report 4664542-6 (Version None)
Quarter: 2005Q2

REPORT INFORMATION
  Report Type: 
  Country: None (occurrence: None)
  Receive Date: 20050516
  Receipt Date: 20050516
  Transmission Date: 20051028
  Serious: Yes (Hospitalization)
  Sender: FDA-Public Use
  Company Number: None

PATIENT
  Sex: Female

DRUGS (3)
  1. LITHIUM CARBONATE [Suspect]
     Indication: MOOD SWINGS
     Dosage: 600MG PO BID
     Route: 048
     Dates: start: 20041001, end: 20041016
  2. SEROQUEL [Concomitant]
  3. DEPAKOTE ER [Concomitant]

REACTIONS (1)
  - MENTAL STATUS CHANGES [None]
